FAERS Safety Report 6250603-7 (Version None)
Quarter: 2009Q2

REPORT INFORMATION
  Report Type: 
  Country: None (occurrence: None)
  Receive Date: 20090630
  Receipt Date: 20090622
  Transmission Date: 20091009
  Serious: Yes (Hospitalization)
  Sender: FDA-Public Use
  Company Number: AU-B.I. PHARMACEUTICALS,INC./RIDGEFIELD-2009-AU-00091AU

PATIENT
  Sex: Female
  Weight: 55 kg

DRUGS (1)
  1. MOBIC [Suspect]

REACTIONS (1)
  - RECTAL HAEMORRHAGE [None]
